FAERS Safety Report 12933023 (Version 1)
Quarter: 2016Q4

REPORT INFORMATION
  Report Type: Spontaneous
  Country: CN (occurrence: CN)
  Receive Date: 20161111
  Receipt Date: 20161111
  Transmission Date: 20170207
  Serious: Yes (Hospitalization)
  Sender: FDA-Public Use
  Company Number: CN-PFIZER INC-2016524740

PATIENT
  Age: 83 Year
  Sex: Male
  Weight: 90 kg

DRUGS (1)
  1. SOLU-MEDROL [Suspect]
     Active Substance: METHYLPREDNISOLONE SODIUM SUCCINATE
     Indication: BRONCHOSPASM
     Dosage: 40 MG, 1X/DAY
     Route: 041
     Dates: start: 20160919, end: 20160919

REACTIONS (2)
  - Neutrophil count increased [Recovering/Resolving]
  - White blood cell count increased [Recovering/Resolving]

NARRATIVE: CASE EVENT DATE: 20160919
